FAERS Safety Report 8019700-X (Version None)
Quarter: 2012Q1

REPORT INFORMATION
  Report Type: 
  Country: None (occurrence: None)
  Receive Date: 20120103
  Receipt Date: 20111226
  Transmission Date: 20120608
  Serious: Yes (Other)
  Sender: FDA-Public Use
  Company Number: PE-GLAXOSMITHKLINE-A0959382A

PATIENT
  Sex: Female

DRUGS (1)
  1. FLUTICASONE PROPIONATE/SALMETEROL [Suspect]
     Indication: ASTHMA
     Dosage: 2PUFF PER DAY
     Route: 048
     Dates: start: 20110906, end: 20111006

REACTIONS (4)
  - NAUSEA [None]
  - HAEMATEMESIS [None]
  - SYNCOPE [None]
  - COUGH [None]
